FAERS Safety Report 17561558 (Version 1)
Quarter: 2020Q1

REPORT INFORMATION
  Report Type: Spontaneous
  Country: US (occurrence: US)
  Receive Date: 20200319
  Receipt Date: 20200319
  Transmission Date: 20200409
  Serious: Yes (Life-Threatening)
  Sender: FDA-Public Use
  Company Number: None

PATIENT
  Age: 48 Year
  Sex: Male
  Weight: 81.65 kg

DRUGS (2)
  1. PERIOGARD [Concomitant]
     Active Substance: CHLORHEXIDINE GLUCONATE
     Dates: start: 20200103, end: 20200103
  2. PERIOGARD [Suspect]
     Active Substance: CHLORHEXIDINE GLUCONATE
     Indication: THERAPEUTIC GARGLE
     Route: 048
     Dates: start: 20200103, end: 20200103

REACTIONS (3)
  - Urticaria [None]
  - Pharyngeal swelling [None]
  - Haemorrhage [None]

NARRATIVE: CASE EVENT DATE: 20200103
